FAERS Safety Report 18292557 (Version 2)
Quarter: 2021Q3

REPORT INFORMATION
  Report Type: Spontaneous
  Country: US (occurrence: US)
  Receive Date: 20200922
  Receipt Date: 20210926
  Transmission Date: 20211014
  Serious: Yes (Disabling, Other)
  Sender: FDA-Public Use
  Company Number: US-SA-2020SA253807

PATIENT
  Sex: Female

DRUGS (1)
  1. ZANTAC [Suspect]
     Active Substance: RANITIDINE HYDROCHLORIDE
     Dosage: 150 MG, TID
     Dates: start: 2000, end: 2017

REACTIONS (7)
  - Colorectal cancer [Unknown]
  - Neoplasm malignant [Unknown]
  - Anxiety [Unknown]
  - Injury [Unknown]
  - Colon cancer [Unknown]
  - Disability [Unknown]
  - Illness [Unknown]

NARRATIVE: CASE EVENT DATE: 2017
